FAERS Safety Report 10652646 (Version 3)
Quarter: 2015Q1

REPORT INFORMATION
  Report Type: Spontaneous
  Country: US (occurrence: US)
  Receive Date: 20141215
  Receipt Date: 20150206
  Transmission Date: 20150720
  Serious: Yes (Other)
  Sender: FDA-Public Use
  Company Number: US-BAYER-2014-182471

PATIENT
  Age: 37 Year
  Sex: Female

DRUGS (1)
  1. MIRENA [Suspect]
     Active Substance: LEVONORGESTREL
     Dosage: 20 MCG/24HR, CONT
     Route: 015

REACTIONS (4)
  - Genital haemorrhage [Unknown]
  - Amenorrhoea [Unknown]
  - Menstruation irregular [Unknown]
  - Hypomenorrhoea [Unknown]

NARRATIVE: CASE EVENT DATE: 201411
